FAERS Safety Report 9869848 (Version 2)
Quarter: 2014Q1

REPORT INFORMATION
  Report Type: Spontaneous
  Country: AU (occurrence: None)
  Receive Date: 20140203
  Receipt Date: 20140205
  Transmission Date: 20141002
  Serious: Yes (Life-Threatening, Other)
  Sender: FDA-Public Use
  Company Number: 2014-000146

PATIENT
  Age: 75 Year
  Sex: Male

DRUGS (11)
  1. ACTONEL [Suspect]
     Route: 048
  2. CALTRATE [Suspect]
  3. CARTIA (ACETYLSALICYLIC ACID) [Suspect]
  4. COPLAVIX [Suspect]
  5. CRESTOR (ROSUVASTATIN CALCIUM) [Suspect]
  6. FISH OIL (FISH OIL) [Suspect]
     Dosage: 1 DOES FROM DAILY
  7. HUMIRA [Suspect]
     Dosage: 1 TIMES/2 WEEK
     Dates: start: 20130419, end: 20131128
  8. METOPROLOL (METOPROLOL) [Suspect]
  9. PANAMAX [Suspect]
  10. PREDNISOLONE (PREDNISOLONE) [Suspect]
  11. ZOTON [Suspect]

REACTIONS (2)
  - Salmonella sepsis [None]
  - Aortic aneurysm [None]
